FAERS Safety Report 23470770 (Version 1)
Quarter: 2024Q1

REPORT INFORMATION
  Report Type: Spontaneous
  Country: IT (occurrence: IT)
  Receive Date: 20240202
  Receipt Date: 20240202
  Transmission Date: 20240410
  Serious: Yes (Other)
  Sender: FDA-Public Use
  Company Number: None

PATIENT
  Age: 56 Year
  Sex: Male

DRUGS (25)
  1. BORTEZOMIB [Suspect]
     Active Substance: BORTEZOMIB
     Dosage: UNK, 4 CYCLE
     Route: 065
     Dates: start: 20100113, end: 20100406
  2. BORTEZOMIB [Suspect]
     Active Substance: BORTEZOMIB
     Dosage: UNK, THREE CYCLE
     Route: 065
     Dates: start: 20091030, end: 20091211
  3. BORTEZOMIB [Suspect]
     Active Substance: BORTEZOMIB
     Indication: Plasma cell myeloma
     Dosage: UNK,2 CYCLES
     Route: 065
     Dates: start: 20100616, end: 20100803
  4. ALPELISIB [Suspect]
     Active Substance: ALPELISIB
     Indication: Plasma cell myeloma
     Dosage: UNK,11 CYCLES
     Route: 065
     Dates: start: 20140807, end: 20150526
  5. BENDAMUSTINE [Suspect]
     Active Substance: BENDAMUSTINE
     Indication: Plasma cell myeloma
     Dosage: UNK,
     Route: 065
     Dates: start: 20140115, end: 20140520
  6. CYCLOPHOSPHAMIDE [Suspect]
     Active Substance: CYCLOPHOSPHAMIDE
     Indication: Plasma cell myeloma
     Dosage: UNK,2 CYCLES
     Route: 065
     Dates: start: 20100616, end: 20100803
  7. CYCLOPHOSPHAMIDE [Suspect]
     Active Substance: CYCLOPHOSPHAMIDE
     Dosage: UNK,SINGLE CYCLE
     Route: 065
     Dates: start: 20081121
  8. CYCLOPHOSPHAMIDE [Suspect]
     Active Substance: CYCLOPHOSPHAMIDE
     Dosage: UNK,SIX CYCLES
     Route: 065
     Dates: start: 20090115, end: 20090604
  9. CARFILZOMIB [Suspect]
     Active Substance: CARFILZOMIB
     Indication: Plasma cell myeloma
     Dosage: UNK, 7 CYCLES
     Route: 065
     Dates: start: 20151115, end: 20160225
  10. DEXAMETHASONE [Suspect]
     Active Substance: DEXAMETHASONE
     Dosage: UNK, 7 CYCLE
     Route: 065
     Dates: start: 20151115, end: 20160225
  11. DEXAMETHASONE [Suspect]
     Active Substance: DEXAMETHASONE
     Dosage: UNK, THREE CYCLE
     Route: 065
     Dates: start: 20091030, end: 20091211
  12. DEXAMETHASONE [Suspect]
     Active Substance: DEXAMETHASONE
     Dosage: UNK,2 CYCLES
     Route: 065
     Dates: start: 20100616, end: 20100803
  13. DEXAMETHASONE [Suspect]
     Active Substance: DEXAMETHASONE
     Indication: Plasma cell myeloma
     Dosage: UNK,4 CYCLES
     Route: 065
     Dates: start: 20100115, end: 20100406
  14. DEXAMETHASONE [Suspect]
     Active Substance: DEXAMETHASONE
     Dosage: UNK,FOUR CYCLES
     Route: 065
     Dates: start: 20080701, end: 20080923
  15. DOXORUBICIN [Suspect]
     Active Substance: DOXORUBICIN
     Dosage: UNK,2 CYCLES
     Route: 065
     Dates: start: 20100616, end: 20100803
  16. DOXORUBICIN [Suspect]
     Active Substance: DOXORUBICIN
     Indication: Plasma cell myeloma
     Dosage: UNK,4 CYCLES
     Route: 065
     Dates: start: 20100115, end: 20100406
  17. ETOPOSIDE [Suspect]
     Active Substance: ETOPOSIDE
     Indication: Plasma cell myeloma
     Dosage: UNK,2 CYCLES
     Route: 065
     Dates: start: 20100616, end: 20100803
  18. LENALIDOMIDE [Suspect]
     Active Substance: LENALIDOMIDE
     Dosage: UNK,FOUR CYCLES
     Route: 065
     Dates: start: 20080701, end: 20080923
  19. LENALIDOMIDE [Suspect]
     Active Substance: LENALIDOMIDE
     Indication: Plasma cell myeloma
     Dosage: UNK,SIX CYCLES
     Route: 065
     Dates: start: 20090115, end: 20090604
  20. INVESTIGATIONAL PRODUCT [Suspect]
     Active Substance: INVESTIGATIONAL PRODUCT
     Indication: Plasma cell myeloma
     Dosage: UNK,11 CYCLES
     Route: 065
     Dates: start: 20140807, end: 20150526
  21. MELPHALAN [Suspect]
     Active Substance: MELPHALAN
     Indication: Plasma cell myeloma
     Dosage: UNK,1 CYCLE
     Route: 065
     Dates: start: 20140625
  22. POMALIDOMIDE [Suspect]
     Active Substance: POMALIDOMIDE
     Indication: Plasma cell myeloma
     Dosage: UNK,7 CYCLES
     Route: 065
     Dates: start: 20151115, end: 20160225
  23. PREDNISONE [Suspect]
     Active Substance: PREDNISONE
     Dosage: UNK,1 CYCLE
     Route: 065
     Dates: start: 20140625
  24. PREDNISONE [Suspect]
     Active Substance: PREDNISONE
     Indication: Plasma cell myeloma
     Dosage: UNK,SIX CYCLES
     Route: 065
     Dates: start: 20090115, end: 20090604
  25. LAMIVUDINE [Concomitant]
     Active Substance: LAMIVUDINE
     Indication: Product used for unknown indication
     Dosage: UNK
     Route: 065

REACTIONS (3)
  - Plasma cell myeloma [Unknown]
  - Malignant neoplasm progression [Unknown]
  - Hepatitis B reactivation [Not Recovered/Not Resolved]
